FAERS Safety Report 8872931 (Version 2)
Quarter: 2012Q4

REPORT INFORMATION
  Report Type: 
  Country: JP (occurrence: JP)
  Receive Date: 20121030
  Receipt Date: 20121228
  Transmission Date: 20130627
  Serious: Yes (Death, Other)
  Sender: FDA-Public Use
  Company Number: JP-ROCHE-1150014

PATIENT
  Age: 80 Year
  Sex: Female
  Weight: 50 kg

DRUGS (14)
  1. AVASTIN [Suspect]
     Indication: LARGE INTESTINE CARCINOMA
     Dosage: Uncertain dosage and five times in total
     Route: 041
     Dates: start: 20120710, end: 2012
  2. AVASTIN [Suspect]
     Indication: LARGE INTESTINE CARCINOMA
     Dosage: Uncertain dosage and two times in total
     Route: 041
     Dates: start: 20120925, end: 20121009
  3. 5-FU [Suspect]
     Indication: COLON CANCER RECURRENT
     Dosage: Uncertain dosage and five times in total
     Route: 040
     Dates: start: 20120710, end: 2012
  4. 5-FU [Suspect]
     Indication: COLON CANCER RECURRENT
     Dosage: Uncertain dosage and five times in total
     Route: 041
     Dates: start: 20120710, end: 2012
  5. 5-FU [Suspect]
     Indication: COLON CANCER RECURRENT
     Dosage: Uncertain dosage and two times in total
     Route: 040
     Dates: start: 20120925, end: 20121009
  6. 5-FU [Suspect]
     Indication: COLON CANCER RECURRENT
     Dosage: Uncertain dosage and two times in total
     Route: 041
     Dates: start: 20120925, end: 201210
  7. LEVOFOLINATE [Suspect]
     Indication: COLON CANCER RECURRENT
     Dosage: Uncertain dosage and five times in total
     Route: 041
     Dates: start: 20120710, end: 2012
  8. LEVOFOLINATE [Suspect]
     Indication: COLON CANCER RECURRENT
     Dosage: Uncertain dosage and two times in total
     Route: 041
     Dates: start: 20120925, end: 20121009
  9. IRINOTECAN HYDROCHLORIDE [Suspect]
     Indication: COLON CANCER RECURRENT
     Dosage: Uncertain dosage and two times in total
     Route: 041
     Dates: start: 20120925, end: 20121009
  10. ELPLAT [Concomitant]
     Indication: COLON CANCER RECURRENT
     Dosage: Uncertain dosage and five times in total
     Route: 041
     Dates: start: 20120710, end: 2012
  11. OXALIPLATIN [Concomitant]
  12. 5-FU [Concomitant]
  13. CALCIUM LEVOFOLINATE [Concomitant]
  14. IRINOTECAN HYDROCHLORIDE [Concomitant]

REACTIONS (5)
  - Interstitial lung disease [Fatal]
  - Infection [Unknown]
  - Headache [Unknown]
  - Hypoaesthesia [Unknown]
  - Hypoaesthesia [Unknown]
